FAERS Safety Report 8770661 (Version 1)
Quarter: 2012Q4

REPORT INFORMATION
  Report Type: 
  Country: US (occurrence: US)
  Receive Date: 20120906
  Receipt Date: 20120906
  Transmission Date: 20130627
  Serious: Yes (Other)
  Sender: FDA-Public Use
  Company Number: US-MYLANLABS-2012S1017669

PATIENT
  Age: 52 Year
  Sex: Male

DRUGS (10)
  1. SIMVASTATIN [Suspect]
     Route: 065
  2. VALSARTAN [Concomitant]
     Indication: HYPERTENSION
     Route: 065
  3. HYDROCHLOROTHIAZIDE [Concomitant]
     Indication: HYPERTENSION
     Route: 065
  4. BUPIVACAINE [Concomitant]
     Indication: ANAESTHESIA PROCEDURE
     Dosage: 15mg of 0.75% bupivacaine
  5. FENTANYL [Concomitant]
     Indication: PAIN
     Dosage: 2 mcg/mL at 6mL/hr
     Route: 008
  6. ROPIVACAINE [Concomitant]
     Indication: PAIN
     Dosage: 0.2% at 6 mL/hr
     Route: 008
  7. FENTANYL [Concomitant]
     Indication: PAIN
     Dosage: 2 mcg/mL; 4mL every 12 minutes
     Route: 008
  8. ROPIVACAINE [Concomitant]
     Indication: PAIN
     Dosage: 0.2%; 4mL every 12 minutes
     Route: 008
  9. FENTANYL [Concomitant]
     Indication: PAIN
     Dosage: 2 mcg/mL at 5mL/hr
     Route: 008
  10. ROPIVACAINE [Concomitant]
     Indication: PAIN
     Dosage: 0.2% at 5 mL/hr
     Route: 008

REACTIONS (2)
  - Compartment syndrome [Recovering/Resolving]
  - Myositis [Unknown]
